FAERS Safety Report 4673064-8 (Version None)
Quarter: 2005Q2

REPORT INFORMATION
  Report Type: 
  Country: None (occurrence: None)
  Receive Date: 20050525
  Receipt Date: 20050516
  Transmission Date: 20051028
  Serious: Yes (Hospitalization)
  Sender: FDA-Public Use
  Company Number: PHFR2005GB01832

PATIENT
  Age: 84 Year
  Sex: Female

DRUGS (5)
  1. DICLOFENAC SODIUM [Suspect]
     Indication: RHEUMATOID ARTHRITIS
     Route: 048
     Dates: end: 20050509
  2. ASPIRIN [Suspect]
     Indication: PAIN
     Route: 048
     Dates: end: 20050509
  3. TRAMADOL [Concomitant]
     Indication: RHEUMATOID ARTHRITIS
     Dosage: 100 MG, BID
     Route: 048
  4. LANSOPRAZOLE [Concomitant]
     Dosage: 30 MG, QD
     Route: 048
  5. CO-DYDRAMOL [Concomitant]
     Indication: RHEUMATOID ARTHRITIS
     Dosage: 2 UKN, QID
     Route: 048

REACTIONS (2)
  - DYSPEPSIA [None]
  - IRON DEFICIENCY ANAEMIA [None]
